FAERS Safety Report 6772643-1 (Version None)
Quarter: 2010Q2

REPORT INFORMATION
  Report Type: 
  Country: None (occurrence: None)
  Receive Date: 20100616
  Receipt Date: 20100107
  Transmission Date: 20101027
  Serious: No
  Sender: FDA-Public Use
  Company Number: US-ASTRAZENECA-2009SE18016

PATIENT
  Sex: Female
  Weight: 60.3 kg

DRUGS (12)
  1. PULMICORT [Suspect]
     Indication: ASTHMA
     Route: 055
  2. SYMBICORT [Suspect]
     Indication: ASTHMA
     Dosage: TOTAL DAILY DOSE 640 MCG, TWO PUFFS
     Route: 055
     Dates: start: 20090101
  3. SYMBICORT [Suspect]
     Dosage: TOTAL DAILY DOSE 320 MCG, ONE PUFF IN THE AM
     Route: 055
  4. ADVAIR DISKUS 100/50 [Suspect]
  5. ACCUPRIL [Concomitant]
  6. NASONEX [Concomitant]
  7. SYNTHROID [Concomitant]
     Indication: THYROID DISORDER
  8. CYMBALTA [Concomitant]
  9. FETOFENADINE [Concomitant]
     Indication: HYPERSENSITIVITY
  10. SINGULAIR [Concomitant]
     Indication: HYPERSENSITIVITY
  11. PREMARIN [Concomitant]
  12. ALBUTEROL [Concomitant]

REACTIONS (2)
  - INSOMNIA [None]
  - MUSCLE SPASMS [None]
